FAERS Safety Report 9399945 (Version 2)
Quarter: 2013Q3

REPORT INFORMATION
  Report Type: Report from Study
  Country: MX (occurrence: MX)
  Receive Date: 20130715
  Receipt Date: 20130724
  Transmission Date: 20140515
  Serious: Yes (Death, Hospitalization)
  Sender: FDA-Public Use
  Company Number: MX-ROCHE-1241806

PATIENT
  Age: 60 Year
  Sex: Male
  Weight: 50 kg

DRUGS (3)
  1. XELODA [Suspect]
     Indication: COLORECTAL CANCER
     Route: 048
     Dates: start: 20120724, end: 201212
  2. AVASTIN [Suspect]
     Indication: COLORECTAL CANCER
     Route: 042
     Dates: start: 201207, end: 201212
  3. OXALIPLATIN [Suspect]
     Indication: COLORECTAL CANCER
     Route: 042
     Dates: start: 201207, end: 201212

REACTIONS (8)
  - Rectal neoplasm [Fatal]
  - Abdominal pain [Not Recovered/Not Resolved]
  - Vomiting [Unknown]
  - Hypoaesthesia [Unknown]
  - Dry skin [Unknown]
  - Feeling cold [Unknown]
  - Asthenia [Unknown]
  - Nausea [Not Recovered/Not Resolved]
